FAERS Safety Report 17535679 (Version 2)
Quarter: 2020Q2

REPORT INFORMATION
  Report Type: Report from Study
  Country: None (occurrence: US)
  Receive Date: 20200312
  Receipt Date: 20200428
  Transmission Date: 20200713
  Serious: Yes (Other)
  Sender: FDA-Public Use
  Company Number: US-ABBVIE-19K-163-2939167-00

PATIENT
  Age: 78 Year
  Sex: Male
  Weight: 97.16 kg

DRUGS (5)
  1. VENCLEXTA [Suspect]
     Active Substance: VENETOCLAX
     Route: 048
     Dates: start: 201911, end: 20200227
  2. VENCLEXTA [Suspect]
     Active Substance: VENETOCLAX
     Route: 048
     Dates: start: 20200415
  3. VENCLEXTA [Suspect]
     Active Substance: VENETOCLAX
     Indication: CHRONIC LYMPHOCYTIC LEUKAEMIA
     Route: 048
     Dates: start: 20190920
  4. VENCLEXTA [Suspect]
     Active Substance: VENETOCLAX
     Route: 048
     Dates: start: 20200307, end: 2020
  5. RITUXAN [Concomitant]
     Active Substance: RITUXIMAB
     Indication: CHRONIC LYMPHOCYTIC LEUKAEMIA

REACTIONS (5)
  - Fatigue [Recovered/Resolved]
  - Fatigue [Recovered/Resolved]
  - Device related infection [Recovered/Resolved]
  - Sleep disorder [Unknown]
  - Stent placement [Recovered/Resolved]

NARRATIVE: CASE EVENT DATE: 201909
